FAERS Safety Report 17836475 (Version 1)
Quarter: 2020Q2

REPORT INFORMATION
  Report Type: Spontaneous
  Country: US (occurrence: US)
  Receive Date: 20200526
  Receipt Date: 20200526
  Transmission Date: 20200714
  Serious: Yes (Other)
  Sender: FDA-Public Use
  Company Number: None

PATIENT
  Age: 10 Year
  Sex: Male

DRUGS (2)
  1. CBD CAPSULES [Suspect]
     Active Substance: CANNABIDIOL\HERBALS
  2. PARAHERBS [Suspect]
     Active Substance: DIETARY SUPPLEMENT\HERBALS
     Route: 048

REACTIONS (9)
  - Somnolence [None]
  - Balance disorder [None]
  - Pallor [None]
  - Paraesthesia [None]
  - Lethargy [None]
  - Tachycardia [None]
  - Muscle twitching [None]
  - Platelet count decreased [None]
  - Mental disorder [None]

NARRATIVE: CASE EVENT DATE: 20200520
